FAERS Safety Report 8716210 (Version 2)
Quarter: 2013Q4

REPORT INFORMATION
  Report Type: Spontaneous
  Country: US (occurrence: US)
  Receive Date: 20120809
  Receipt Date: 20131101
  Transmission Date: 20140711
  Serious: Yes (Hospitalization, Other)
  Sender: FDA-Public Use
  Company Number: US-009507513-1207USA003961

PATIENT
  Age: 63 Year
  Sex: Male
  Weight: 90 kg

DRUGS (20)
  1. ZEMURON [Suspect]
     Indication: RESPIRATION ABNORMAL
     Dosage: 8 MICROGRAM PER KILOGRAM PER MINUTE
     Route: 042
  2. ZEMURON [Suspect]
     Dosage: 50 MG, 2 BOLUS DOSE
  3. MEROPENEM [Concomitant]
     Indication: SEPSIS
     Dosage: 50 MG, Q8H
     Route: 042
  4. MEROPENEM [Concomitant]
     Indication: PYREXIA
  5. MEROPENEM [Concomitant]
     Indication: WHITE BLOOD CELL COUNT DECREASED
  6. SODIUM CHLORIDE [Concomitant]
     Indication: FLUID REPLACEMENT
     Dosage: 0.9 %, CONTINOUS INFUSION
     Route: 042
  7. NOREPINEPHRINE [Concomitant]
     Indication: MEAN ARTERIAL PRESSURE
     Dosage: CONTINOUS INFUSION
     Route: 042
  8. LORAZEPAM [Concomitant]
     Dosage: 2 MILLIGRAM PER HOUR
     Route: 042
  9. FENTANYL [Concomitant]
     Dosage: CONTINOUS INFUSION
     Route: 042
  10. DESFLURANE [Concomitant]
     Dosage: 2.1 TO 3 PERCENT
  11. EPINEPHRINE [Concomitant]
     Indication: CARDIAC ARREST
  12. ATROPINE [Concomitant]
     Indication: CARDIAC ARREST
  13. TIGECYCLINE [Concomitant]
     Dosage: 100 MG, QD
     Route: 042
  14. ALBUTEROL SULFATE [Concomitant]
     Dosage: NEBULIZATION
  15. ACETYLCYSTEINE [Concomitant]
     Dosage: 20 %, NEBULIZATION
  16. PANTOPRAZOLE [Concomitant]
     Dosage: 40 MG, QD
     Route: 042
  17. AMIODARONE [Concomitant]
     Dosage: 150 MG, UNK
     Route: 040
  18. AMIODARONE [Concomitant]
     Dosage: 750 MG, INFUSION
     Route: 042
  19. VASOPRESSIN [Concomitant]
     Dosage: 0.03 UNIT PER MINUTE
     Route: 042
  20. INSULIN [Concomitant]
     Indication: BLOOD GLUCOSE ABNORMAL

REACTIONS (1)
  - Hyperthermia malignant [Recovered/Resolved]
